FAERS Safety Report 4523193-4 (Version None)
Quarter: 2004Q4

REPORT INFORMATION
  Report Type: 
  Country: None (occurrence: None)
  Receive Date: 20041129
  Receipt Date: 20041117
  Transmission Date: 20050328
  Serious: Yes (Hospitalization)
  Sender: FDA-Public Use
  Company Number: 2004-03699

PATIENT
  Age: 79 Year
  Sex: Male

DRUGS (1)
  1. IMMUCYST (BCG - IT (CONNAUGHT)) [Suspect]
     Indication: IMMUNISATION
     Dosage: 81 MG
     Route: 043
     Dates: start: 20041111

REACTIONS (2)
  - HAEMATURIA [None]
  - URETHRAL OBSTRUCTION [None]
